FAERS Safety Report 18801775 (Version 1)
Quarter: 2021Q1

REPORT INFORMATION
  Report Type: Report from Study
  Country: AU (occurrence: AU)
  Receive Date: 20210128
  Receipt Date: 20210128
  Transmission Date: 20210419
  Serious: Yes (Hospitalization)
  Sender: FDA-Public Use
  Company Number: AU-AMGEN-AUSCT2021012351

PATIENT
  Age: 34 Year
  Sex: Female
  Weight: 88 kg

DRUGS (99)
  1. LEUCOVORIN [FOLINIC ACID] [Suspect]
     Active Substance: LEUCOVORIN
     Dosage: 30 MILLIGRAM
     Route: 042
  2. HYDROCORTISONE. [Suspect]
     Active Substance: HYDROCORTISONE
     Indication: SEPSIS
     Dosage: 50 MILLIGRAM
     Route: 037
     Dates: start: 20201019
  3. FILGRASTIM [Concomitant]
     Active Substance: FILGRASTIM
     Indication: COLONY STIMULATING FACTOR THERAPY
     Dosage: 300 MICROGRAM
     Dates: start: 20200807, end: 20200828
  4. PANTOPRAZOLE [Concomitant]
     Active Substance: PANTOPRAZOLE
     Indication: STEROID THERAPY
     Dosage: 40 MILLIGRAM, BID
     Dates: start: 20200724, end: 20200821
  5. PANTOPRAZOLE [Concomitant]
     Active Substance: PANTOPRAZOLE
     Dosage: 40 MILLIGRAM, QD
     Dates: start: 20201010, end: 20201101
  6. TRANEXAMIC ACID. [Concomitant]
     Active Substance: TRANEXAMIC ACID
     Dosage: 1 GRAM, BID
     Route: 048
     Dates: start: 20200809, end: 20200810
  7. PARACETAMOL [Concomitant]
     Active Substance: ACETAMINOPHEN
     Indication: PYREXIA
     Dosage: 500 MILLILITER, EVERY SIX HOURS
     Dates: start: 20201006
  8. KENALOG [Concomitant]
     Active Substance: TRIAMCINOLONE ACETONIDE
     Indication: MOUTH ULCERATION
     Dosage: UNK UNK, TID (PRN)
     Dates: start: 20200727, end: 20200807
  9. MEROPENEM. [Concomitant]
     Active Substance: MEROPENEM
     Indication: SEPSIS
     Dosage: 2 GRAM, TID
     Route: 042
     Dates: start: 20200807, end: 20200809
  10. FENTANYL. [Concomitant]
     Active Substance: FENTANYL
     Indication: MUCOSAL INFLAMMATION
     Dosage: 12.5 MICROGRAM, QH
     Dates: start: 20201030, end: 20201031
  11. FENTANYL. [Concomitant]
     Active Substance: FENTANYL
     Dosage: 25 MICROGRAM, QH
     Dates: start: 20201031, end: 20201102
  12. FENTANYL. [Concomitant]
     Active Substance: FENTANYL
     Dosage: 50 MICROGRAM, QH
     Dates: start: 20201102
  13. MACROGOL 3350 [Concomitant]
     Active Substance: POLYETHYLENE GLYCOL 3350
     Indication: CONSTIPATION PROPHYLAXIS
  14. CSL [Concomitant]
     Indication: CONSTIPATION PROPHYLAXIS
  15. ELIQUIS [Concomitant]
     Active Substance: APIXABAN
     Indication: DEEP VEIN THROMBOSIS
     Dosage: 10 MILLIGRAM, BID
     Dates: start: 20200902, end: 20200908
  16. CYCLOPHOSPHAMIDE. [Suspect]
     Active Substance: CYCLOPHOSPHAMIDE
     Dosage: 400 MILLIGRAM
     Route: 042
  17. LIGNOCAINE [LIDOCAINE] [Concomitant]
     Active Substance: LIDOCAINE
     Dosage: 10 MILLILITER
     Route: 058
     Dates: start: 20200825, end: 20200825
  18. TEMAZEPAM. [Concomitant]
     Active Substance: TEMAZEPAM
     Dosage: 5?10 MILLIGRAM PRN
     Dates: start: 20201019
  19. METOCLOPRAMIDE. [Concomitant]
     Active Substance: METOCLOPRAMIDE
     Indication: VOMITING
  20. PALEXIA [Concomitant]
     Active Substance: TAPENTADOL HYDROCHLORIDE
     Dosage: 50 MILLIGRAM, EVERY 4?6 HOURS
     Dates: start: 20201006, end: 20201007
  21. PALONOSETRON. [Concomitant]
     Active Substance: PALONOSETRON HYDROCHLORIDE
     Indication: NAUSEA
     Dosage: UNK
     Route: 042
     Dates: start: 20200810, end: 20200810
  22. CLEXANE [Concomitant]
     Active Substance: ENOXAPARIN SODIUM
     Indication: THROMBOSIS PROPHYLAXIS
     Dosage: 40 MILLIGRAM, QD
     Dates: start: 20200822, end: 20200830
  23. URAL [SODIUM BICARBONATE] [Concomitant]
     Dosage: UNK UNK, BID
     Dates: start: 20201019, end: 20201019
  24. BLINATUMOMAB [Suspect]
     Active Substance: BLINATUMOMAB
     Indication: B PRECURSOR TYPE ACUTE LEUKAEMIA
     Dosage: UNK
     Route: 065
     Dates: start: 20200901, end: 20200929
  25. DEXAMETHASONE. [Suspect]
     Active Substance: DEXAMETHASONE
     Indication: B PRECURSOR TYPE ACUTE LEUKAEMIA
     Dosage: 40 MILLIGRAM
     Route: 065
     Dates: start: 20201019
  26. VINCRISTINE [Suspect]
     Active Substance: VINCRISTINE
     Dosage: 2 MILLIGRAM
     Route: 042
  27. METHOTREXATE. [Suspect]
     Active Substance: METHOTREXATE
     Indication: B PRECURSOR TYPE ACUTE LEUKAEMIA
     Dosage: 10400 MILLIGRAM
     Route: 042
     Dates: start: 20201019
  28. CYTARABINE. [Suspect]
     Active Substance: CYTARABINE
     Indication: B PRECURSOR TYPE ACUTE LEUKAEMIA
     Dosage: 30 MILLIGRAM
     Route: 037
     Dates: start: 20201019
  29. CYTARABINE. [Suspect]
     Active Substance: CYTARABINE
     Dosage: 4750 MILLIGRAM
     Route: 042
     Dates: start: 20201023
  30. HYDROCORTISONE. [Suspect]
     Active Substance: HYDROCORTISONE
     Indication: B PRECURSOR TYPE ACUTE LEUKAEMIA
     Dosage: 100 MILLIGRAM
     Route: 065
     Dates: start: 20200807, end: 20200807
  31. SERTRALINE [Concomitant]
     Active Substance: SERTRALINE HYDROCHLORIDE
     Indication: DEPRESSION
     Dosage: 100 MILLIGRAM, QD
     Dates: start: 20200506
  32. PANTOPRAZOLE [Concomitant]
     Active Substance: PANTOPRAZOLE
     Dosage: 40 MILLIGRAM, QD
     Route: 042
     Dates: start: 20201102
  33. METOCLOPRAMIDE. [Concomitant]
     Active Substance: METOCLOPRAMIDE
     Indication: NAUSEA
     Dosage: 10 MILLIGRAM, TID (PRN)
     Dates: start: 20200724
  34. FYBOGEL [Concomitant]
     Active Substance: PLANTAGO OVATA SEED
     Indication: CONSTIPATION PROPHYLAXIS
     Dosage: UNK, AS NECESSARY
     Dates: start: 20200805, end: 20200806
  35. TEMGESIC [Concomitant]
     Active Substance: BUPRENORPHINE HYDROCHLORIDE
     Dosage: 200 MICROGRAM,PRN
     Dates: start: 20201006, end: 20201007
  36. RASBURICASE [Concomitant]
     Active Substance: RASBURICASE
     Dosage: 3 MILLIGRAM
     Route: 042
     Dates: start: 20200731, end: 20200731
  37. METARAMINOL [Concomitant]
     Active Substance: METARAMINOL
     Indication: HYPOTENSION
     Dosage: 0.5 MILLIGRAM
     Route: 042
     Dates: start: 20200807, end: 20200808
  38. AMIKACIN. [Concomitant]
     Active Substance: AMIKACIN
     Indication: SEPSIS
     Dosage: 225 MILLIGRAM
     Route: 042
     Dates: start: 20200807, end: 20200807
  39. NORETHISTERONE [Concomitant]
     Active Substance: NORETHINDRONE
     Dosage: 5 MILLIGRAM, TID
     Dates: start: 20200816, end: 20200821
  40. MEROPENEM. [Concomitant]
     Active Substance: MEROPENEM
     Dosage: 1 GRAM, TID
     Route: 042
     Dates: start: 20200810, end: 20200817
  41. CELECOXIB. [Concomitant]
     Active Substance: CELECOXIB
     Indication: ANTIINFLAMMATORY THERAPY
     Dosage: 20 MILLIGRAM
     Dates: start: 20201006, end: 20201008
  42. OLANZAPINE. [Concomitant]
     Active Substance: OLANZAPINE
     Indication: PROPHYLAXIS
     Dosage: 5 MILLIGRAM, Q4H (PRN)
     Dates: start: 20201021
  43. METHOTREXATE. [Suspect]
     Active Substance: METHOTREXATE
     Dosage: 12 MILLIGRAM
     Route: 037
     Dates: start: 20201019
  44. PEG/L?ASPARAGINASE [Suspect]
     Active Substance: PEGASPARGASE
     Indication: B PRECURSOR TYPE ACUTE LEUKAEMIA
     Dosage: 2100 UNIT
     Route: 065
     Dates: start: 20201024
  45. LEVONORGESTREL. [Concomitant]
     Active Substance: LEVONORGESTREL
     Indication: CONTRACEPTION
     Dosage: 20 MICROGRAM, QD
     Dates: start: 201809, end: 20200731
  46. METHOXYFLURANE. [Concomitant]
     Active Substance: METHOXYFLURANE
     Dosage: UNK
     Dates: start: 20200825, end: 20200825
  47. VALACICLOVIR [Concomitant]
     Active Substance: VALACYCLOVIR HYDROCHLORIDE
     Dosage: 500 MILLIGRAM
     Dates: start: 20200903
  48. BACTRIM [Concomitant]
     Active Substance: SULFAMETHOXAZOLE\TRIMETHOPRIM
     Dosage: 800/160 MILLIGRAM, BID
     Dates: start: 20201026
  49. NORETHISTERONE [Concomitant]
     Active Substance: NORETHINDRONE
     Dosage: 15 MILLIGRAM, QD
     Dates: start: 20200826, end: 20200829
  50. PALEXIA [Concomitant]
     Active Substance: TAPENTADOL HYDROCHLORIDE
     Indication: PAIN
     Dosage: 50 MILLIGRAM, BID
     Dates: start: 20200810, end: 20200813
  51. PALONOSETRON. [Concomitant]
     Active Substance: PALONOSETRON HYDROCHLORIDE
     Indication: VOMITING
  52. DROPERIDOL. [Concomitant]
     Active Substance: DROPERIDOL
     Indication: NAUSEA
     Dosage: 0.5 MILLIGRAM
     Dates: start: 20201006, end: 20201007
  53. DEXAMETHASONE. [Suspect]
     Active Substance: DEXAMETHASONE
     Dosage: UNK
     Route: 065
     Dates: start: 20201022
  54. VALACICLOVIR [Concomitant]
     Active Substance: VALACYCLOVIR HYDROCHLORIDE
     Indication: PROPHYLAXIS
     Dosage: 500 MILLIGRAM
     Dates: start: 20200725, end: 20200824
  55. BACTRIM [Concomitant]
     Active Substance: SULFAMETHOXAZOLE\TRIMETHOPRIM
     Indication: PROPHYLAXIS
     Dosage: 800/160 MILLIGRAM, BID
     Dates: start: 20200727, end: 20201008
  56. TRANEXAMIC ACID. [Concomitant]
     Active Substance: TRANEXAMIC ACID
     Indication: HAEMOSTASIS
     Dosage: 1 GRAM
     Dates: start: 20200726, end: 20200730
  57. TAZOCIN [Concomitant]
     Active Substance: PIPERACILLIN SODIUM\TAZOBACTAM SODIUM
     Indication: SEPSIS
     Dosage: 4.5 GRAM, QID
     Dates: start: 20200807, end: 20200807
  58. FENTANYL. [Concomitant]
     Active Substance: FENTANYL
     Indication: PAIN
     Dosage: 20 MICROGRAM
     Dates: start: 20200810, end: 20200810
  59. VANCOMYCIN [Concomitant]
     Active Substance: VANCOMYCIN
     Indication: SEPSIS
     Dosage: 125 MILLIGRAM, QD
     Dates: start: 20200821, end: 20200831
  60. FUROSEMIDE. [Concomitant]
     Active Substance: FUROSEMIDE
     Indication: OEDEMA
     Dosage: 20 MILLIGRAM, QD
     Route: 048
     Dates: start: 20200908, end: 20200915
  61. FUROSEMIDE. [Concomitant]
     Active Substance: FUROSEMIDE
     Dosage: 40 MILLIGRAM, QD
     Route: 048
     Dates: start: 20201022, end: 20201024
  62. VINCRISTINE [Suspect]
     Active Substance: VINCRISTINE
     Indication: B PRECURSOR TYPE ACUTE LEUKAEMIA
     Dosage: UNK
     Route: 042
     Dates: start: 20201019
  63. LIGNOCAINE [LIDOCAINE] [Concomitant]
     Active Substance: LIDOCAINE
     Dosage: 5 MILLILITER
     Dates: start: 20200724, end: 20200724
  64. TEMGESIC [Concomitant]
     Active Substance: BUPRENORPHINE HYDROCHLORIDE
     Indication: PAIN
     Dosage: 200 MICROGRAM, Q4H
     Route: 060
     Dates: start: 20200807, end: 20200904
  65. TAZOCIN [Concomitant]
     Active Substance: PIPERACILLIN SODIUM\TAZOBACTAM SODIUM
     Dosage: 4.5 MILLIGRAM, QD
     Route: 042
     Dates: start: 20201101
  66. NORETHISTERONE [Concomitant]
     Active Substance: NORETHINDRONE
     Indication: HAEMORRHAGE
     Dosage: 5 MILLIGRAM, TID
     Dates: start: 20200809, end: 20200811
  67. NYSTATIN. [Concomitant]
     Active Substance: NYSTATIN
     Indication: MUCOSAL INFLAMMATION
     Dosage: 20 MILLILITER, QD
     Route: 061
     Dates: start: 20200807, end: 20200810
  68. FORTISIP COMPACT PROTEIN [Concomitant]
     Indication: NUTRITIONAL SUPPLEMENTATION
     Dosage: 125 MILLILITER, BID
     Dates: start: 20200817, end: 20200905
  69. FUROSEMIDE. [Concomitant]
     Active Substance: FUROSEMIDE
     Indication: OEDEMA PERIPHERAL
     Dosage: 40 MILLIGRAM
     Route: 048
     Dates: start: 20200821, end: 20200821
  70. ONDANSETRON [Concomitant]
     Active Substance: ONDANSETRON
     Indication: NAUSEA
     Dosage: 4 MILLIGRAM, QD (PRN)
     Dates: start: 20200823, end: 20200905
  71. OLANZAPINE. [Concomitant]
     Active Substance: OLANZAPINE
     Indication: VOMITING
  72. LEUCOVORIN [FOLINIC ACID] [Suspect]
     Active Substance: LEUCOVORIN
     Indication: B PRECURSOR TYPE ACUTE LEUKAEMIA
     Dosage: UNK
     Route: 042
     Dates: start: 20201021
  73. CYCLOPHOSPHAMIDE. [Suspect]
     Active Substance: CYCLOPHOSPHAMIDE
     Indication: B PRECURSOR TYPE ACUTE LEUKAEMIA
     Dosage: UNK
     Route: 042
     Dates: start: 20201020
  74. FILGRASTIM [Concomitant]
     Active Substance: FILGRASTIM
     Dosage: 6 MILLIGRAM
     Dates: start: 20201024
  75. ALLOPURINOL. [Concomitant]
     Active Substance: ALLOPURINOL
     Indication: PROPHYLAXIS
     Dosage: 300 MILLIGRAM, QD
     Dates: start: 20200721, end: 20200805
  76. PANTOPRAZOLE [Concomitant]
     Active Substance: PANTOPRAZOLE
     Indication: PROPHYLAXIS
     Dosage: 40 MILLIGRAM, QD
     Dates: start: 20200824, end: 20200901
  77. VALACICLOVIR [Concomitant]
     Active Substance: VALACYCLOVIR HYDROCHLORIDE
     Dosage: 1 GRAM, BID
     Dates: start: 20200825, end: 20200902
  78. TRANEXAMIC ACID. [Concomitant]
     Active Substance: TRANEXAMIC ACID
     Dosage: 500 MILLIGRAM, TID
     Dates: start: 20200731, end: 20200802
  79. TEMAZEPAM. [Concomitant]
     Active Substance: TEMAZEPAM
     Indication: INSOMNIA
     Dosage: 10 MILLIGRAM
     Dates: start: 20200724, end: 20200905
  80. AMBISOME [Concomitant]
     Active Substance: AMPHOTERICIN B
     Indication: ANTIFUNGAL PROPHYLAXIS
     Dosage: 100 MILLIGRAM, QD
     Dates: start: 20200805, end: 20200821
  81. ENDONE [Concomitant]
     Active Substance: OXYCODONE HYDROCHLORIDE
     Indication: PAIN
     Dosage: 5 MILLIGRAM, Q4H
     Dates: start: 20200807, end: 20200808
  82. TAZOCIN [Concomitant]
     Active Substance: PIPERACILLIN SODIUM\TAZOBACTAM SODIUM
     Dosage: 4.5 GRAM, QD
     Route: 042
     Dates: start: 20200817, end: 20200828
  83. GELOFEN [Concomitant]
     Indication: PAIN
     Dosage: 500 MILLILITER
     Dates: start: 20200807, end: 20200807
  84. ONDANSETRON [Concomitant]
     Active Substance: ONDANSETRON
     Indication: VOMITING
     Dosage: 4 MILLIGRAM, (PRN)
     Dates: start: 20201006
  85. CLEXANE [Concomitant]
     Active Substance: ENOXAPARIN SODIUM
     Indication: DEEP VEIN THROMBOSIS
     Dosage: 90 MILLIGRAM, QD
     Dates: start: 20200831, end: 20200901
  86. FLUCONAZOLE. [Concomitant]
     Active Substance: FLUCONAZOLE
     Indication: PROPHYLAXIS
     Dosage: 200 MILLIGRAM, QD
     Dates: start: 20200824, end: 20201012
  87. ELIQUIS [Concomitant]
     Active Substance: APIXABAN
     Dosage: 10 MILLIGRAM, BID
     Dates: start: 20200909, end: 20201030
  88. DOCUSATE [Concomitant]
     Active Substance: DOCUSATE
     Indication: CONSTIPATION PROPHYLAXIS
     Dosage: 50 MILLIGRAM, BID
     Dates: start: 20201006
  89. ACETAZOLAMIDE. [Concomitant]
     Active Substance: ACETAZOLAMIDE
     Dosage: 250 MILLIGRAM, BID
     Dates: start: 20201019, end: 20201019
  90. HYDROXYUREA. [Concomitant]
     Active Substance: HYDROXYUREA
     Dosage: 500 MILLIGRAM, BID
     Dates: start: 20200724, end: 20200725
  91. LIGNOCAINE [LIDOCAINE] [Concomitant]
     Active Substance: LIDOCAINE
     Indication: LOCAL ANAESTHESIA
     Dosage: 10 MILLILITER
     Dates: start: 20200724, end: 20200724
  92. LIGNOCAINE [LIDOCAINE] [Concomitant]
     Active Substance: LIDOCAINE
     Dosage: 10 MILLILITER
     Route: 058
     Dates: start: 20201019, end: 20201019
  93. METHOXYFLURANE. [Concomitant]
     Active Substance: METHOXYFLURANE
     Indication: SEDATION
     Dosage: 3 MILLILITER
     Dates: start: 20200724, end: 20200724
  94. METHOXYFLURANE. [Concomitant]
     Active Substance: METHOXYFLURANE
     Dosage: UNK
     Dates: start: 20201019, end: 20201019
  95. PARACETAMOL [Concomitant]
     Active Substance: ACETAMINOPHEN
     Indication: PAIN
     Dosage: 1 GRAM, QID (PRN)
     Dates: start: 20200724, end: 20200810
  96. TRAMADOL. [Concomitant]
     Active Substance: TRAMADOL
     Indication: PAIN
     Dosage: 50 MILLIGRAM, Q6H
     Route: 048
     Dates: start: 20200724, end: 20200905
  97. COLOXYL C SENNA [Concomitant]
     Active Substance: DOCUSATE SODIUM\SENNOSIDES A AND B
     Indication: CONSTIPATION PROPHYLAXIS
     Dosage: UNK
     Dates: start: 20200807, end: 20200905
  98. MOVICOL PLAIN [Concomitant]
     Active Substance: POLYETHYLENE GLYCOL 3350\POTASSIUM CHLORIDE\SODIUM BICARBONATE\SODIUM CHLORIDE
     Indication: CONSTIPATION PROPHYLAXIS
     Dosage: 2 DOSAGE FORM, BID (PRN)
     Dates: start: 20201006
  99. SODIUM BICARBONATE. [Concomitant]
     Active Substance: SODIUM BICARBONATE
     Dosage: 1680 MILLIGRAM, BID (PRN)
     Dates: start: 20201019, end: 20201019

REACTIONS (1)
  - Mucosal inflammation [Not Recovered/Not Resolved]

NARRATIVE: CASE EVENT DATE: 20201031
